FAERS Safety Report 10724147 (Version 1)
Quarter: 2015Q1

REPORT INFORMATION
  Report Type: Spontaneous
  Country: JP (occurrence: JP)
  Receive Date: 20150120
  Receipt Date: 20150120
  Transmission Date: 20150721
  Serious: Yes (Death)
  Sender: FDA-Public Use
  Company Number: JP-MALLINCKRODT-T201403703

PATIENT
  Age: 45 Year
  Sex: Female
  Weight: 49.7 kg

DRUGS (9)
  1. METHADONE [Suspect]
     Active Substance: METHADONE HYDROCHLORIDE
     Dosage: 15 MG (45 MG DAILY DOSE)
     Route: 048
     Dates: start: 20130506, end: 20130506
  2. METHADONE [Suspect]
     Active Substance: METHADONE HYDROCHLORIDE
     Indication: CANCER PAIN
     Dosage: 15 MG (45 MG DAILY DOSE)
     Route: 048
     Dates: start: 20130425, end: 20130501
  3. LYRICA [Concomitant]
     Active Substance: PREGABALIN
     Dosage: 300 MG
     Route: 048
     Dates: end: 20130429
  4. OXYFAST [Concomitant]
     Active Substance: OXYCODONE
     Dosage: 11.25 MG, PRN
     Route: 051
     Dates: start: 20130426
  5. METHADONE [Suspect]
     Active Substance: METHADONE HYDROCHLORIDE
     Dosage: 10 MG (30 MG DAILY DOSE)
     Route: 048
     Dates: start: 20130507, end: 20130507
  6. NEXIUM [Concomitant]
     Active Substance: ESOMEPRAZOLE MAGNESIUM
     Dosage: 20 MG
     Route: 048
     Dates: end: 20130505
  7. METHADONE [Suspect]
     Active Substance: METHADONE HYDROCHLORIDE
     Dosage: 20 MG (60 MG DAILY DOSE)
     Route: 048
     Dates: start: 20130502, end: 20130505
  8. METHADONE [Suspect]
     Active Substance: METHADONE HYDROCHLORIDE
     Dosage: 5 MG (15 MG DAILY DOSE)
     Route: 048
     Dates: start: 20130508, end: 20130508
  9. HYPEN [Concomitant]
     Active Substance: ETODOLAC
     Dosage: 400 MG
     Route: 048
     Dates: end: 20130504

REACTIONS (1)
  - Rectosigmoid cancer [Fatal]

NARRATIVE: CASE EVENT DATE: 20130515
